FAERS Safety Report 6861147-3 (Version None)
Quarter: 2010Q3

REPORT INFORMATION
  Report Type: 
  Country: None (occurrence: None)
  Receive Date: 20100720
  Receipt Date: 20100715
  Transmission Date: 20110219
  Serious: Yes (Life-Threatening, Other)
  Sender: FDA-Public Use
  Company Number: CN-ASTRAZENECA-2010SE33207

PATIENT
  Age: 17 Year
  Sex: Female
  Weight: 50 kg

DRUGS (1)
  1. DIPRIVAN [Suspect]
     Indication: ABORTION INDUCED
     Route: 042
     Dates: start: 20100713, end: 20100713

REACTIONS (2)
  - BLOOD PRESSURE DECREASED [None]
  - RESPIRATORY ARREST [None]
